FAERS Safety Report 10308613 (Version 3)
Quarter: 2014Q3

REPORT INFORMATION
  Report Type: Spontaneous
  Country: JP (occurrence: JP)
  Receive Date: 20140716
  Receipt Date: 20140813
  Transmission Date: 20150326
  Serious: Yes (Life-Threatening, Hospitalization)
  Sender: FDA-Public Use
  Company Number: JP-GLAXOSMITHKLINE-B1013142A

PATIENT
  Age: 69 Year
  Sex: Female
  Weight: 57 kg

DRUGS (1)
  1. VOTRIENT [Suspect]
     Active Substance: PAZOPANIB HYDROCHLORIDE
     Indication: METASTATIC RENAL CELL CARCINOMA
     Dosage: 800MG PER DAY
     Route: 048
     Dates: start: 20140422, end: 20140707

REACTIONS (10)
  - Mitral valve incompetence [Unknown]
  - Ventricular hypertrophy [Unknown]
  - Cardiac ventricular disorder [Unknown]
  - Dilatation ventricular [Unknown]
  - Mitral valve incompetence [Not Recovered/Not Resolved]
  - Ventricular hypokinesia [Unknown]
  - Left ventricular dysfunction [Recovering/Resolving]
  - Left atrial dilatation [Unknown]
  - Tricuspid valve incompetence [Unknown]
  - Dyspnoea [Unknown]

NARRATIVE: CASE EVENT DATE: 20140628
